FAERS Safety Report 16689232 (Version 1)
Quarter: 2019Q3

REPORT INFORMATION
  Report Type: Spontaneous
  Country: PT (occurrence: PT)
  Receive Date: 20190809
  Receipt Date: 20190809
  Transmission Date: 20191004
  Serious: Yes (Hospitalization, Other)
  Sender: FDA-Public Use
  Company Number: PT-MYLANLABS-2019M1074113

PATIENT
  Age: 82 Year
  Sex: Male

DRUGS (1)
  1. ATORVASTATIN [Suspect]
     Active Substance: ATORVASTATIN
     Indication: PRODUCT USED FOR UNKNOWN INDICATION
     Dosage: 20 MILLIGRAM

REACTIONS (4)
  - Hemiparesis [Recovered/Resolved]
  - Capsular warning syndrome [Recovered/Resolved]
  - Dysarthria [Recovered/Resolved]
  - Hemianaesthesia [Recovered/Resolved]
